FAERS Safety Report 24212544 (Version 2)
Quarter: 2024Q3

REPORT INFORMATION
  Report Type: Report from Study
  Country: US (occurrence: US)
  Receive Date: 20240815
  Receipt Date: 20240821
  Transmission Date: 20241016
  Serious: Yes (Hospitalization)
  Sender: ABBVIE
  Company Number: US-ABBVIE-5875209

PATIENT
  Sex: Female
  Weight: 56.699 kg

DRUGS (2)
  1. SYNTHROID [Suspect]
     Active Substance: LEVOTHYROXINE SODIUM
     Indication: Thyroid disorder
     Route: 048
     Dates: start: 2021
  2. CHLORASEPTIC SORE THROAT [Suspect]
     Active Substance: PHENOL
     Indication: Oropharyngeal pain
     Route: 065

REACTIONS (18)
  - Chest pain [Recovered/Resolved]
  - Hypoaesthesia [Recovering/Resolving]
  - Haematoma [Recovered/Resolved]
  - Polyarthritis [Recovering/Resolving]
  - Insomnia [Recovering/Resolving]
  - Fall [Recovered/Resolved]
  - Muscle spasms [Recovering/Resolving]
  - Fall [Recovered/Resolved]
  - Neuropathy peripheral [Recovering/Resolving]
  - Scar [Not Recovered/Not Resolved]
  - Skin discolouration [Recovered/Resolved]
  - Fall [Recovered/Resolved]
  - Wound [Recovered/Resolved]
  - Lower limb fracture [Recovered/Resolved]
  - Throat irritation [Recovered/Resolved]
  - COVID-19 [Recovered/Resolved]
  - Pain in extremity [Recovering/Resolving]
  - Limb injury [Not Recovered/Not Resolved]

NARRATIVE: CASE EVENT DATE: 20220101
